FAERS Safety Report 10154128 (Version 1)
Quarter: 2014Q2

REPORT INFORMATION
  Report Type: Spontaneous
  Country: US (occurrence: None)
  Receive Date: 20140505
  Receipt Date: 20140505
  Transmission Date: 20141212
  Serious: Yes (Hospitalization)
  Sender: FDA-Public Use
  Company Number: None

PATIENT
  Age: 69 Year
  Sex: Female
  Weight: 62.1 kg

DRUGS (2)
  1. CISPLATIN [Suspect]
     Dates: start: 20110525
  2. ETOPOSIDE [Suspect]
     Dates: start: 20110527

REACTIONS (2)
  - White blood cell count decreased [None]
  - Neutrophil count decreased [None]
